FAERS Safety Report 20635243 (Version 1)
Quarter: 2022Q1

REPORT INFORMATION
  Report Type: Spontaneous
  Country: NL (occurrence: NL)
  Receive Date: 20220325
  Receipt Date: 20220325
  Transmission Date: 20220423
  Serious: Yes (Disabling)
  Sender: FDA-Public Use
  Company Number: None

PATIENT
  Sex: Male
  Weight: 106 kg

DRUGS (9)
  1. GABAPENTIN [Suspect]
     Active Substance: GABAPENTIN
     Indication: Polyneuropathy
     Dosage: 3X A DAY 2 CAPS, INCREASING TO MAX 3600; 600 MG; THERAPY END DATE: ASKU; GABAPENTINE CAPSULE 300MG /
     Dates: start: 2022
  2. HYDROXOCOBALAMIN HYDROCHLORIDE [Concomitant]
     Active Substance: HYDROXOCOBALAMIN HYDROCHLORIDE
     Dosage: 500 UG/ML; THERAPY START AND END DATE: ASKU; HYDROCOBAMINE INJVLST 500MCG/ML AMPOULE 2ML
  3. DULOXETINE [Concomitant]
     Active Substance: DULOXETINE
     Dosage: 30 MG; THERAPY START AND END DATE: ASKU; DULOXETINE CAPSULE MSR 30MG / BRAND NAME NOT SPECIFIED
  4. ATORVASTATIN [Concomitant]
     Active Substance: ATORVASTATIN
     Dosage: 20 MG; THERAPY START AND END DATE: ASKU; ATORVASTATIN TABLET 20MG / BRAND NAME NOT SPECIFIED
  5. METFORMIN HYDROCHLORIDE [Concomitant]
     Active Substance: METFORMIN HYDROCHLORIDE
     Dosage: 1000 MG; THERAPY START AND END DATE: ASKU; METFORMIN TABLET MGA 1000MG / BRAND NAME NOT SPECIFIED
  6. OMEPRAZOLE [Concomitant]
     Active Substance: OMEPRAZOLE
     Dosage: 20 MG; THERAPY START AND END DATE: ASKU; OMEPRAZOL CAPSULE MSR 20MG / BRAND NAME NOT SPECIFIED
  7. INSULIN GLARGINE [Concomitant]
     Active Substance: INSULIN GLARGINE
     Dosage: 100 UNITS/ML; THERAPY START AND END DATE: ASKU; ABASAGLAR INJVLST 100E/ML PEN 3MLABASAGLAR INJVLST 1
  8. FEXOFENADINE [Concomitant]
     Active Substance: FEXOFENADINE HYDROCHLORIDE
     Dosage: 180 MG; THERAPY START AND END DATE: ASKU; FEXOFENADINE TABLET COATED 180MG / BRAND NAME NOT SPECIFIE
  9. GLICLAZIDE [Concomitant]
     Active Substance: GLICLAZIDE
     Dosage: 30 MG; THERAPY START AND END DATE: ASKU; GLICLAZIDE TABLET MGA 30MG / BRAND NAME NOT SPECIFIED

REACTIONS (1)
  - Blood glucose fluctuation [Not Recovered/Not Resolved]
